FAERS Safety Report 9288612 (Version 5)
Quarter: 2014Q4

REPORT INFORMATION
  Report Type: Spontaneous
  Country: NL (occurrence: NL)
  Receive Date: 20130514
  Receipt Date: 20141125
  Transmission Date: 20150529
  Serious: Yes (Other)
  Sender: FDA-Public Use
  Company Number: NL-ACTELION-A-CH2013-82844

PATIENT
  Age: 24 Year
  Sex: Female
  Weight: 64 kg

DRUGS (13)
  1. NIVAQUINE [Concomitant]
     Active Substance: CHLOROQUINE\CHLOROQUINE PHOSPHATE
     Dosage: UNK
     Dates: start: 20120124
  2. PANTOZOL [Concomitant]
     Active Substance: PANTOPRAZOLE SODIUM
     Dosage: UNK
     Dates: start: 20120615
  3. FOLIC ACID. [Concomitant]
     Active Substance: FOLIC ACID
  4. CARBASALATE [Concomitant]
     Active Substance: CARBASALATE
  5. TRACLEER [Suspect]
     Active Substance: BOSENTAN\BOSENTAN MONOHYDRATE
     Dosage: 62.5 MG, BID
     Route: 048
     Dates: start: 20120615
  6. PREDNISON [Concomitant]
     Active Substance: PREDNISONE
     Dosage: UNK
     Dates: start: 20120208
  7. CALCICHEW [Concomitant]
     Active Substance: CALCIUM CARBONATE
  8. NIFEDIPINE. [Concomitant]
     Active Substance: NIFEDIPINE
  9. TRACLEER [Suspect]
     Active Substance: BOSENTAN\BOSENTAN MONOHYDRATE
     Indication: SKIN ULCER
     Dosage: 125 MG, BID
     Route: 048
     Dates: end: 20130418
  10. TRACLEER [Suspect]
     Active Substance: BOSENTAN\BOSENTAN MONOHYDRATE
     Dosage: 125 MG, BID
     Route: 048
     Dates: start: 20130508
  11. ASCAL [Concomitant]
     Active Substance: CARBASALATE
     Dosage: UNK
     Dates: start: 20120615
  12. METHOTREXATE [Concomitant]
     Active Substance: METHOTREXATE
     Dosage: UNK
     Dates: start: 20120614
  13. KETENSIN [Concomitant]
     Dosage: UNK
     Dates: start: 20120615

REACTIONS (3)
  - Abortion spontaneous [Recovered/Resolved]
  - Pregnancy [Recovered/Resolved]
  - Evacuation of retained products of conception [Recovered/Resolved]

NARRATIVE: CASE EVENT DATE: 201304
